FAERS Safety Report 9700900 (Version 1)
Quarter: 2013Q4

REPORT INFORMATION
  Report Type: Spontaneous
  Country: ES (occurrence: ES)
  Receive Date: 20131121
  Receipt Date: 20131121
  Transmission Date: 20140711
  Serious: Yes (Life-Threatening, Hospitalization, Other)
  Sender: FDA-Public Use
  Company Number: ES-009507513-1311ESP006058

PATIENT
  Age: 23 Year
  Sex: Female
  Weight: 56 kg

DRUGS (1)
  1. NUVARING [Suspect]
     Indication: CONTRACEPTION
     Dosage: ETONOGESTREL 0.120 MG / ETHYNILESTRADIOL 0.015 MG
     Route: 067
     Dates: start: 2008, end: 2011

REACTIONS (3)
  - Pulmonary embolism [Recovered/Resolved]
  - Hypoxia [Recovered/Resolved]
  - Respiratory failure [Recovered/Resolved]
